FAERS Safety Report 6939951-2 (Version None)
Quarter: 2010Q3

REPORT INFORMATION
  Report Type: 
  Country: None (occurrence: None)
  Receive Date: 20100825
  Receipt Date: 20100818
  Transmission Date: 20110219
  Serious: Yes (Other)
  Sender: FDA-Public Use
  Company Number: GR-PFIZER INC-2009295283

PATIENT
  Age: 72 Year
  Sex: Male
  Weight: 85 kg

DRUGS (4)
  1. LIPITOR [Suspect]
     Indication: CORONARY ARTERY DISEASE
     Dosage: 10 MG, 1X/DAY
     Route: 048
     Dates: start: 20070301, end: 20090501
  2. LIPITOR [Suspect]
     Indication: HYPERLIPIDAEMIA
  3. LOPRESSOR [Concomitant]
     Dosage: 0.25 DF, 1X/DAY
     Route: 048
     Dates: start: 19990101
  4. SALOSPIR [Concomitant]
     Dosage: 100 MG, 1X/DAY
     Route: 048
     Dates: start: 19990101

REACTIONS (3)
  - GAIT DISTURBANCE [None]
  - SENSORY DISTURBANCE [None]
  - VISUAL IMPAIRMENT [None]
